FAERS Safety Report 24055303 (Version 2)
Quarter: 2024Q3

REPORT INFORMATION
  Report Type: Spontaneous
  Country: US (occurrence: US)
  Receive Date: 20240705
  Receipt Date: 20240709
  Transmission Date: 20241016
  Serious: No
  Sender: JOHNSON AND JOHNSON
  Company Number: US-JNJFOC-20240713001

PATIENT
  Age: 70 Year
  Sex: Female
  Weight: 90.2 kg

DRUGS (22)
  1. MACITENTAN [Suspect]
     Active Substance: MACITENTAN
     Indication: Product used for unknown indication
     Route: 048
  2. TREPROSTINIL SODIUM [Suspect]
     Active Substance: TREPROSTINIL SODIUM
     Indication: Pulmonary arterial hypertension
     Route: 041
     Dates: start: 20221110
  3. TREPROSTINIL SODIUM [Suspect]
     Active Substance: TREPROSTINIL SODIUM
     Route: 041
  4. SIMVASTATIN [Concomitant]
     Active Substance: SIMVASTATIN
  5. PEPCID [Concomitant]
     Active Substance: FAMOTIDINE
  6. ALCOHOL\DEXTROMETHORPHAN\GUAIFENESIN [Concomitant]
     Active Substance: ALCOHOL\DEXTROMETHORPHAN\GUAIFENESIN
  7. VITAMIN D3 [Concomitant]
     Active Substance: CHOLECALCIFEROL
  8. PANTOPRAZOLE SODIUM [Concomitant]
     Active Substance: PANTOPRAZOLE SODIUM
  9. LASIX [Concomitant]
     Active Substance: FUROSEMIDE
  10. TADALAFIL [Concomitant]
     Active Substance: TADALAFIL
  11. POLYVINYL ALCOHOL [Concomitant]
     Active Substance: POLYVINYL ALCOHOL
  12. METOPROLOL SUCCINATE [Concomitant]
     Active Substance: METOPROLOL SUCCINATE
  13. MONTELUKAST SODIUM [Concomitant]
     Active Substance: MONTELUKAST SODIUM
  14. OXYGEN [Concomitant]
     Active Substance: OXYGEN
  15. SPIRONOLACTONE [Concomitant]
     Active Substance: SPIRONOLACTONE
  16. FEXOFENADINE HYDROCHLORIDE [Concomitant]
     Active Substance: FEXOFENADINE HYDROCHLORIDE
  17. FERROUS SULFATE [Concomitant]
     Active Substance: FERROUS SULFATE
  18. JANUVIA [Concomitant]
     Active Substance: SITAGLIPTIN PHOSPHATE
  19. METFORMIN [Concomitant]
     Active Substance: METFORMIN HYDROCHLORIDE
  20. LOSARTAN POTASSIUM [Concomitant]
     Active Substance: LOSARTAN POTASSIUM
  21. ASPIRIN [Concomitant]
     Active Substance: ASPIRIN
  22. RESTASIS [Concomitant]
     Active Substance: CYCLOSPORINE

REACTIONS (3)
  - SARS-CoV-2 test positive [Recovering/Resolving]
  - Nasal congestion [Recovering/Resolving]
  - Hyperhidrosis [Unknown]
